FAERS Safety Report 7758561-0 (Version None)
Quarter: 2011Q3

REPORT INFORMATION
  Report Type: 
  Country: None (occurrence: None)
  Receive Date: 20110914
  Receipt Date: 20110902
  Transmission Date: 20111222
  Serious: Yes (Other)
  Sender: FDA-Public Use
  Company Number: 2011SP041736

PATIENT
  Age: 50 Year
  Sex: Male

DRUGS (1)
  1. PEG-INTRON [Suspect]
     Indication: HEPATITIS C
     Dosage: SC
     Route: 058

REACTIONS (8)
  - FATIGUE [None]
  - MYALGIA [None]
  - MUSCLE SPASMS [None]
  - ARTHRALGIA [None]
  - ALOPECIA [None]
  - PYREXIA [None]
  - HAEMATOCHEZIA [None]
  - ONYCHALGIA [None]
